FAERS Safety Report 9929230 (Version 1)
Quarter: 2014Q1

REPORT INFORMATION
  Report Type: Spontaneous
  Country: US (occurrence: None)
  Receive Date: 20140225
  Receipt Date: 20140225
  Transmission Date: 20141002
  Serious: Yes (Death)
  Sender: FDA-Public Use
  Company Number: 1402-0360

PATIENT
  Age: 82 Year
  Sex: Female

DRUGS (1)
  1. EYELEA (AFLIBERCEPT) (INJECTION) (AFLIBERCEPT) [Suspect]
     Dosage: INTRAVITREAL

REACTIONS (2)
  - Aneurysm [None]
  - Cardiac failure [None]
